FAERS Safety Report 17050296 (Version 2)
Quarter: 2020Q1

REPORT INFORMATION
  Report Type: Report from Study
  Country: CN (occurrence: CN)
  Receive Date: 20191119
  Receipt Date: 20200317
  Transmission Date: 20200409
  Serious: Yes (Hospitalization)
  Sender: FDA-Public Use
  Company Number: CN-PFIZER INC-2019494324

PATIENT
  Age: 66 Year
  Sex: Female
  Weight: 52 kg

DRUGS (9)
  1. NUO XIN [Suspect]
     Active Substance: CISPLATIN
     Dosage: 40 MG, CYLIC, D2-3
     Dates: start: 20190928, end: 20190929
  2. NUO XIN [Suspect]
     Active Substance: CISPLATIN
     Dosage: 40 MG, CYCLIC, D2-3
     Dates: start: 20190905, end: 20190906
  3. KN046 [Suspect]
     Active Substance: INVESTIGATIONAL PRODUCT
     Indication: OESOPHAGEAL SQUAMOUS CELL CARCINOMA
     Dosage: 45 MG, EVERY 3 WEEKS
     Route: 042
     Dates: start: 20191001
  4. NUO XIN [Suspect]
     Active Substance: CISPLATIN
     Dosage: 30 MG, CYCLIC D1
     Dates: start: 20190927, end: 20190927
  5. ANZATAX (PACLITAXEL) [Suspect]
     Active Substance: PACLITAXEL
     Indication: OESOPHAGEAL SQUAMOUS CELL CARCINOMA
     Dosage: 210 MG, CYCLIC, D1
     Dates: start: 20190904, end: 20190904
  6. ANZATAX (PACLITAXEL) [Suspect]
     Active Substance: PACLITAXEL
     Dosage: 210 MG, CYCLIC, D1
     Dates: start: 20191021, end: 20191021
  7. ANZATAX (PACLITAXEL) [Suspect]
     Active Substance: PACLITAXEL
     Dosage: 210 MG, CYCLIC, D1
     Dates: start: 20190927, end: 20190927
  8. NUO XIN [Suspect]
     Active Substance: CISPLATIN
     Indication: OESOPHAGEAL SQUAMOUS CELL CARCINOMA
     Dosage: 30 MG, CYCLIC D1
     Dates: start: 20190904, end: 20190904
  9. NUO XIN [Suspect]
     Active Substance: CISPLATIN
     Dosage: 30 MG, CYCLIC, D1-3
     Dates: start: 20191021, end: 20191023

REACTIONS (1)
  - White blood cell count decreased [Recovered/Resolved]

NARRATIVE: CASE EVENT DATE: 20191027
